FAERS Safety Report 25803634 (Version 1)
Quarter: 2025Q3

REPORT INFORMATION
  Report Type: Spontaneous
  Country: CA (occurrence: CA)
  Receive Date: 20250915
  Receipt Date: 20250915
  Transmission Date: 20251020
  Serious: Yes (Other)
  Sender: BRISTOL-MYERS SQUIBB COMPANY
  Company Number: CA-BRISTOL-MYERS SQUIBB COMPANY-2025-125951

PATIENT
  Age: 50 Year
  Sex: Male

DRUGS (4)
  1. AZACITIDINE [Suspect]
     Active Substance: AZACITIDINE
     Indication: Precursor T-lymphoblastic leukaemia acute
  2. AZACITIDINE/VENETOCLA X [Concomitant]
     Indication: Precursor T-lymphoblastic leukaemia acute
  3. GILTERITINIB [Concomitant]
     Active Substance: GILTERITINIB
     Indication: Precursor T-lymphoblastic leukaemia acute
  4. VENETOCLAX [Suspect]
     Active Substance: VENETOCLAX

REACTIONS (3)
  - Off label use [Unknown]
  - Product use issue [Unknown]
  - Thrombotic microangiopathy [Recovered/Resolved]
